FAERS Safety Report 17435051 (Version 1)
Quarter: 2020Q3

REPORT INFORMATION
  Report Type: Report from Study
  Country: DE (occurrence: DE)
  Receive Date: 20200219
  Receipt Date: 20200219
  Transmission Date: 20201104
  Serious: Yes (Death, Hospitalization, Other)
  Sender: FDA-Public Use
  Company Number: DE-ROCHE-2471832

PATIENT
  Age: 81 Year
  Sex: Male
  Weight: 70 kg

DRUGS (7)
  1. POLATUZUMAB VEDOTIN. [Suspect]
     Active Substance: POLATUZUMAB VEDOTIN
     Indication: DIFFUSE LARGE B-CELL LYMPHOMA
     Route: 041
     Dates: start: 20190722, end: 20191014
  2. RITUXIMAB. [Suspect]
     Active Substance: RITUXIMAB
     Indication: DIFFUSE LARGE B-CELL LYMPHOMA
     Route: 042
     Dates: start: 20190722, end: 20191014
  3. BISOPROLOL [Concomitant]
     Active Substance: BISOPROLOL
  4. TOREM [TORASEMIDE] [Concomitant]
     Active Substance: TORSEMIDE
  5. ALLOPURINOL. [Concomitant]
     Active Substance: ALLOPURINOL
  6. BENDAMUSTINE [Suspect]
     Active Substance: BENDAMUSTINE
     Indication: DIFFUSE LARGE B-CELL LYMPHOMA
     Route: 042
     Dates: start: 20190722, end: 20191015
  7. ELIQUIS [Concomitant]
     Active Substance: APIXABAN

REACTIONS (24)
  - Cardiac failure [Unknown]
  - Pneumonia [Recovered/Resolved with Sequelae]
  - Hyperglycaemia [Recovered/Resolved]
  - Blood alkaline phosphatase increased [Recovered/Resolved]
  - C-reactive protein increased [Unknown]
  - Hypokalaemia [Recovered/Resolved]
  - Hypercalcaemia [Recovered/Resolved with Sequelae]
  - Blood creatinine decreased [Not Recovered/Not Resolved]
  - Duodenitis [Unknown]
  - Leukopenia [Recovered/Resolved]
  - Abdominal distension [Unknown]
  - Skin infection [Recovered/Resolved]
  - Anaemia [Not Recovered/Not Resolved]
  - Thrombocytopenia [Not Recovered/Not Resolved]
  - Gamma-glutamyltransferase increased [Not Recovered/Not Resolved]
  - Decreased appetite [Unknown]
  - General physical health deterioration [Unknown]
  - Hiatus hernia [Unknown]
  - Oesophageal candidiasis [Unknown]
  - Hyperuricaemia [Recovered/Resolved]
  - Fatigue [Recovered/Resolved]
  - Hypocalcaemia [Not Recovered/Not Resolved]
  - Pulmonary oedema [Unknown]
  - Vomiting [Unknown]

NARRATIVE: CASE EVENT DATE: 20191024
